FAERS Safety Report 23311835 (Version 2)
Quarter: 2023Q4

REPORT INFORMATION
  Report Type: Other
  Country: US (occurrence: None)
  Receive Date: 20231219
  Receipt Date: 20231222
  Transmission Date: 20240110
  Serious: Yes (Hospitalization)
  Sender: FDA-Public Use
  Company Number: US-ROCHE-3472989

PATIENT
  Age: 63 Year
  Sex: Female

DRUGS (21)
  1. OCREVUS [Suspect]
     Active Substance: OCRELIZUMAB
     Indication: Relapsing-remitting multiple sclerosis
     Dosage: DATE OF TREATMENT: 03/NOV/2022?ON 03/MAY/2023, THE PATIENT RECEIVED THE LAST DOSE OF OCREVUS
     Route: 065
     Dates: start: 20220314
  2. OCREVUS [Suspect]
     Active Substance: OCRELIZUMAB
     Route: 065
     Dates: start: 202302
  3. NUVIGIL [Concomitant]
     Active Substance: ARMODAFINIL
  4. ABILIFY [Concomitant]
     Active Substance: ARIPIPRAZOLE
  5. ASPIRIN [Concomitant]
     Active Substance: ASPIRIN
  6. PREDNISOLONE [Concomitant]
     Active Substance: PREDNISOLONE
  7. LITHIUM [Concomitant]
     Active Substance: LITHIUM
  8. LAMICTAL [Concomitant]
     Active Substance: LAMOTRIGINE
  9. ARICEPT [Concomitant]
     Active Substance: DONEPEZIL HYDROCHLORIDE
  10. TIZANIDINE [Concomitant]
     Active Substance: TIZANIDINE
  11. COSENTYX [Concomitant]
     Active Substance: SECUKINUMAB
  12. SYNTHROID [Concomitant]
     Active Substance: LEVOTHYROXINE SODIUM
  13. ATORVASTATIN [Concomitant]
     Active Substance: ATORVASTATIN
  14. LOSARTAN [Concomitant]
     Active Substance: LOSARTAN
  15. TOPAMAX [Concomitant]
     Active Substance: TOPIRAMATE
  16. VITAMIN B12 [Concomitant]
     Active Substance: CYANOCOBALAMIN
  17. VITAMIN B COMPLEX [Concomitant]
     Active Substance: CYANOCOBALAMIN\DEXPANTHENOL\NIACINAMIDE\PYRIDOXINE HYDROCHLORIDE\RIBOFLAVIN 5^-PHOSPHATE SODIUM\THIA
  18. BYSTOLIC [Concomitant]
     Active Substance: NEBIVOLOL HYDROCHLORIDE
  19. GLUCOSAMINE [Concomitant]
     Active Substance: GLUCOSAMINE
  20. LIDOCAINE [Concomitant]
     Active Substance: LIDOCAINE
  21. ADDERALL [Concomitant]
     Active Substance: AMPHETAMINE ASPARTATE\AMPHETAMINE SULFATE\DEXTROAMPHETAMINE SACCHARATE\DEXTROAMPHETAMINE SULFATE

REACTIONS (2)
  - Cytomegalovirus infection [Recovering/Resolving]
  - Diarrhoea [Unknown]

NARRATIVE: CASE EVENT DATE: 20230201
